FAERS Safety Report 9049155 (Version 1)
Quarter: 2013Q1

REPORT INFORMATION
  Report Type: Spontaneous
  Country: US (occurrence: None)
  Receive Date: 20130130
  Receipt Date: 20130130
  Transmission Date: 20140127
  Serious: Yes (Life-Threatening, Disabling, Other)
  Sender: FDA-Public Use
  Company Number: None

PATIENT
  Sex: Female

DRUGS (2)
  1. CYMBALTA [Suspect]
     Indication: PELVIC PAIN
     Dosage: ON, OFF FOR A TAKEN WHILE + BACK ON TO APRIL 2012
  2. CYMBALTA [Suspect]
     Indication: DEPRESSED MOOD
     Dosage: ON, OFF FOR A TAKEN WHILE + BACK ON TO APRIL 2012

REACTIONS (9)
  - Feeling abnormal [None]
  - Loss of consciousness [None]
  - Fall [None]
  - Rib fracture [None]
  - Contusion [None]
  - Pain [None]
  - Bronchitis chronic [None]
  - Weight decreased [None]
  - Local swelling [None]
